FAERS Safety Report 21702730 (Version 1)
Quarter: 2022Q4

REPORT INFORMATION
  Report Type: Spontaneous
  Country: DE (occurrence: DE)
  Receive Date: 20221209
  Receipt Date: 20221209
  Transmission Date: 20230112
  Serious: Yes (Other)
  Sender: FDA-Public Use
  Company Number: None

PATIENT
  Age: 53 Year
  Sex: Female

DRUGS (18)
  1. LEVETIRACETAM [Suspect]
     Active Substance: LEVETIRACETAM
     Indication: Petit mal epilepsy
     Dosage: UNK
  2. LEVETIRACETAM [Suspect]
     Active Substance: LEVETIRACETAM
     Indication: Generalised tonic-clonic seizure
  3. LEVETIRACETAM [Suspect]
     Active Substance: LEVETIRACETAM
     Indication: Myoclonus
  4. CARBAMAZEPINE [Interacting]
     Active Substance: CARBAMAZEPINE
     Indication: Generalised tonic-clonic seizure
     Dosage: 400 MILLIGRAM/12 HOURS
  5. CARBAMAZEPINE [Interacting]
     Active Substance: CARBAMAZEPINE
     Indication: Petit mal epilepsy
  6. CARBAMAZEPINE [Interacting]
     Active Substance: CARBAMAZEPINE
     Indication: Myoclonus
  7. LAMOTRIGINE [Suspect]
     Active Substance: LAMOTRIGINE
     Indication: Myoclonus
     Dosage: UNK
  8. LAMOTRIGINE [Suspect]
     Active Substance: LAMOTRIGINE
     Indication: Generalised tonic-clonic seizure
  9. LAMOTRIGINE [Suspect]
     Active Substance: LAMOTRIGINE
     Indication: Petit mal epilepsy
  10. PRIMIDONE [Suspect]
     Active Substance: PRIMIDONE
     Indication: Myoclonus
     Dosage: UNK
  11. PRIMIDONE [Suspect]
     Active Substance: PRIMIDONE
     Indication: Petit mal epilepsy
  12. PRIMIDONE [Suspect]
     Active Substance: PRIMIDONE
     Indication: Generalised tonic-clonic seizure
  13. TOPIRAMATE [Interacting]
     Active Substance: TOPIRAMATE
     Indication: Myoclonus
     Dosage: 300 MILLIGRAM, ONCE DAILY (QD)
  14. TOPIRAMATE [Interacting]
     Active Substance: TOPIRAMATE
     Indication: Generalised tonic-clonic seizure
  15. TOPIRAMATE [Interacting]
     Active Substance: TOPIRAMATE
     Indication: Petit mal epilepsy
  16. VALPROATE [Interacting]
     Active Substance: VALPROIC ACID
     Indication: Myoclonus
     Dosage: 300 MILLIGRAM/12 HOURS
  17. VALPROATE [Interacting]
     Active Substance: VALPROIC ACID
     Indication: Generalised tonic-clonic seizure
  18. VALPROATE [Interacting]
     Active Substance: VALPROIC ACID
     Indication: Petit mal epilepsy

REACTIONS (8)
  - Dupuytren^s contracture [Unknown]
  - Petit mal epilepsy [Unknown]
  - Polyneuropathy [Unknown]
  - Drug interaction [Recovered/Resolved]
  - Mental disorder [Unknown]
  - Musculoskeletal stiffness [Unknown]
  - Rash [Unknown]
  - Tremor [Recovering/Resolving]
